FAERS Safety Report 7604238-1 (Version None)
Quarter: 2011Q3

REPORT INFORMATION
  Report Type: 
  Country: None (occurrence: None)
  Receive Date: 20110712
  Receipt Date: 20110701
  Transmission Date: 20111222
  Serious: Yes (Hospitalization)
  Sender: FDA-Public Use
  Company Number: DE-ASTRAZENECA-2011SE29796

PATIENT
  Age: 20020 Day
  Sex: Female
  Weight: 68 kg

DRUGS (7)
  1. FUROSEMIDE [Concomitant]
  2. SEROQUEL XR [Suspect]
     Indication: PANIC DISORDER
     Route: 048
  3. ESCITALOPRAM [Concomitant]
     Indication: DEPRESSION
     Route: 048
  4. SEROQUEL XR [Suspect]
     Indication: DEPRESSION
     Route: 048
  5. ALPRAZOLAM [Suspect]
     Indication: DEPRESSION
     Route: 048
  6. ESCITALOPRAM [Concomitant]
     Indication: PANIC DISORDER
     Route: 048
  7. ALPRAZOLAM [Suspect]
     Indication: PANIC DISORDER
     Route: 048

REACTIONS (4)
  - TRANSIENT ISCHAEMIC ATTACK [None]
  - MONOPLEGIA [None]
  - SYNCOPE [None]
  - BRADYCARDIA [None]
